FAERS Safety Report 4882143-1 (Version None)
Quarter: 2006Q1

REPORT INFORMATION
  Report Type: 
  Country: None (occurrence: None)
  Receive Date: 20060112
  Receipt Date: 20060102
  Transmission Date: 20060701
  Serious: Yes (Life-Threatening)
  Sender: FDA-Public Use
  Company Number: 2006000331

PATIENT
  Age: 57 Year
  Sex: Male

DRUGS (7)
  1. FOSPHENYTOIN SODIUM [Suspect]
     Indication: CONVULSION
     Dosage: INTRAVENOUS
     Route: 042
     Dates: start: 20051016, end: 20051019
  2. GARDENALE (PHENOBARBITAL SODIUM) [Suspect]
     Indication: CONVULSION
     Dosage: INTRAVENOUS
     Route: 042
     Dates: start: 20050926, end: 20051016
  3. AMOXICILLIN [Concomitant]
  4. ALL OTHER THERAPEUTIC PRODUCTS (ALL OTHER THERAPEUTIC PRODUCTS) [Concomitant]
  5. NICARDIPINE HCL [Concomitant]
  6. FUROSEMIDE [Concomitant]
  7. HALOPERIDOL [Concomitant]

REACTIONS (2)
  - SHOCK [None]
  - TOXIC EPIDERMAL NECROLYSIS [None]
